FAERS Safety Report 10705151 (Version 1)
Quarter: 2015Q1

REPORT INFORMATION
  Report Type: Report from Study
  Country: US (occurrence: US)
  Receive Date: 20150112
  Receipt Date: 20150112
  Transmission Date: 20150721
  Serious: Yes (Death)
  Sender: FDA-Public Use
  Company Number: US-ASTELLAS-2015US000954

PATIENT
  Age: 50 Year

DRUGS (2)
  1. ERLOTINIB [Suspect]
     Active Substance: ERLOTINIB
     Indication: LUNG NEOPLASM MALIGNANT
     Route: 065
     Dates: start: 20120917, end: 20121112
  2. DOVITINIB LACTATE [Suspect]
     Active Substance: DOVITINIB LACTATE
     Indication: LUNG NEOPLASM MALIGNANT
     Route: 065
     Dates: start: 20120917, end: 20121112

REACTIONS (1)
  - Pulmonary embolism [Fatal]
